FAERS Safety Report 14056703 (Version 2)
Quarter: 2017Q4

REPORT INFORMATION
  Report Type: Spontaneous
  Country: US (occurrence: US)
  Receive Date: 20171006
  Receipt Date: 20171214
  Transmission Date: 20180321
  Serious: Yes (Death, Other)
  Sender: FDA-Public Use
  Company Number: US-AMGEN-USASP2017151168

PATIENT
  Age: 72 Year

DRUGS (4)
  1. BLINATUMOMAB [Suspect]
     Active Substance: BLINATUMOMAB
     Indication: PHILADELPHIA CHROMOSOME POSITIVE
     Dosage: 28 MUG, QD, FOR THREE WEEKS
     Route: 065
  2. PONATINIB [Concomitant]
     Active Substance: PONATINIB
     Indication: PHILADELPHIA CHROMOSOME POSITIVE
     Route: 048
  3. BLINATUMOMAB [Suspect]
     Active Substance: BLINATUMOMAB
     Indication: ACUTE LYMPHOCYTIC LEUKAEMIA REFRACTORY
     Dosage: 9 MUG, QD, FIRST WEEK OF THE FIRST CYCLE
     Route: 065
  4. PONATINIB [Concomitant]
     Active Substance: PONATINIB
     Indication: ACUTE LYMPHOCYTIC LEUKAEMIA REFRACTORY

REACTIONS (3)
  - Pneumonia [Fatal]
  - Drug ineffective [Unknown]
  - Status epilepticus [Recovered/Resolved]
